FAERS Safety Report 6969526-0 (Version None)
Quarter: 2010Q3

REPORT INFORMATION
  Report Type: 
  Country: None (occurrence: None)
  Receive Date: 20100907
  Receipt Date: 20100907
  Transmission Date: 20110219
  Serious: Yes (Disabling, Other)
  Sender: FDA-Public Use
  Company Number: None

PATIENT
  Age: 51 Year
  Sex: Female
  Weight: 86.1834 kg

DRUGS (1)
  1. GEODON [Suspect]
     Indication: BIPOLAR DISORDER
     Dosage: 2 80 MG AT NIGHT 2 A DAY PO
     Route: 048
     Dates: start: 20040204, end: 20080115

REACTIONS (16)
  - APHASIA [None]
  - CATATONIA [None]
  - CHILLS [None]
  - DRUG WITHDRAWAL SYNDROME [None]
  - DYSKINESIA [None]
  - ECONOMIC PROBLEM [None]
  - FEELING ABNORMAL [None]
  - GLOSSITIS [None]
  - GLUCOSE TOLERANCE IMPAIRED [None]
  - HYPERHIDROSIS [None]
  - IMMOBILE [None]
  - PAIN [None]
  - PALPITATIONS [None]
  - PROTRUSION TONGUE [None]
  - SOMNAMBULISM [None]
  - WEIGHT INCREASED [None]
